FAERS Safety Report 7407586-3 (Version None)
Quarter: 2011Q2

REPORT INFORMATION
  Report Type: 
  Country: None (occurrence: None)
  Receive Date: 20110406
  Receipt Date: 20110406
  Transmission Date: 20111010
  Serious: No
  Sender: FDA-Public Use
  Company Number: None

PATIENT
  Age: 78 Year
  Sex: Male
  Weight: 65 kg

DRUGS (1)
  1. ABCIXIMAB [Suspect]
     Indication: CARDIAC OPERATION
     Dosage: 17 ML PER HOUR IV
     Route: 042
     Dates: start: 20101116, end: 20101116

REACTIONS (1)
  - THROMBOCYTOPENIA [None]
